FAERS Safety Report 10529278 (Version 40)
Quarter: 2020Q1

REPORT INFORMATION
  Report Type: Report from Study
  Country: CA (occurrence: CA)
  Receive Date: 20141020
  Receipt Date: 20200130
  Transmission Date: 20200409
  Serious: Yes (Other)
  Sender: FDA-Public Use
  Company Number: CA-ROCHE-1461549

PATIENT
  Age: 67 Year
  Sex: Female
  Weight: 70 kg

DRUGS (13)
  1. ACTEMRA [Suspect]
     Active Substance: TOCILIZUMAB
     Dosage: NEXT INFUSION SCHEDULED ON 10/APR/2018
     Route: 042
     Dates: start: 20180313
  2. AMLODIPINE [Concomitant]
     Active Substance: AMLODIPINE BESYLATE
  3. SULFASALAZINE. [Concomitant]
     Active Substance: SULFASALAZINE
  4. GLYBURIDE. [Concomitant]
     Active Substance: GLYBURIDE
     Route: 048
     Dates: start: 20160808
  5. FOSAMAX [Concomitant]
     Active Substance: ALENDRONATE SODIUM
  6. ACTEMRA [Suspect]
     Active Substance: TOCILIZUMAB
     Indication: RHEUMATOID ARTHRITIS
     Route: 042
     Dates: start: 20140814, end: 20190411
  7. PANTOLOC [PANTOPRAZOLE] [Concomitant]
     Active Substance: PANTOPRAZOLE SODIUM
  8. ACTEMRA [Suspect]
     Active Substance: TOCILIZUMAB
     Route: 042
  9. GLYBURIDE. [Concomitant]
     Active Substance: GLYBURIDE
     Route: 048
     Dates: start: 20160808
  10. TYLENOL ARTHRITIS PAIN [Concomitant]
     Active Substance: ACETAMINOPHEN
  11. METOPROLOL. [Concomitant]
     Active Substance: METOPROLOL
  12. ATORVASTATIN [Concomitant]
     Active Substance: ATORVASTATIN
  13. IRBESARTAN. [Concomitant]
     Active Substance: IRBESARTAN

REACTIONS (24)
  - Rheumatoid lung [Unknown]
  - Ankle fracture [Unknown]
  - Blood pressure fluctuation [Unknown]
  - Arthritis [Unknown]
  - Diarrhoea [Not Recovered/Not Resolved]
  - Nasal injury [Unknown]
  - Oxygen saturation decreased [Unknown]
  - Diabetes mellitus inadequate control [Unknown]
  - Infusion related reaction [Unknown]
  - Joint range of motion decreased [Not Recovered/Not Resolved]
  - Weight increased [Recovered/Resolved]
  - Tibia fracture [Unknown]
  - Drug ineffective [Unknown]
  - Blood pressure systolic abnormal [Unknown]
  - Cardiac murmur [Unknown]
  - Respiratory distress [Unknown]
  - Skin lesion [Not Recovered/Not Resolved]
  - Pain in extremity [Unknown]
  - Arthralgia [Unknown]
  - Blood pressure systolic increased [Unknown]
  - Blood pressure increased [Unknown]
  - Mass [Not Recovered/Not Resolved]
  - Acne [Not Recovered/Not Resolved]
  - Musculoskeletal pain [Not Recovered/Not Resolved]

NARRATIVE: CASE EVENT DATE: 201501
